FAERS Safety Report 14565558 (Version 16)
Quarter: 2023Q2

REPORT INFORMATION
  Report Type: Spontaneous
  Country: PL (occurrence: PL)
  Receive Date: 20180223
  Receipt Date: 20230612
  Transmission Date: 20230721
  Serious: Yes (Death, Hospitalization, Other)
  Sender: FDA-Public Use
  Company Number: PL-AUROBINDO-AUR-APL-2018-008848

PATIENT
  Age: 56 Year
  Sex: Female

DRUGS (26)
  1. FLUCONAZOLE [Suspect]
     Active Substance: FLUCONAZOLE
     Indication: Product used for unknown indication
     Dosage: UNK
     Route: 065
  2. MELPHALAN [Suspect]
     Active Substance: MELPHALAN
     Indication: Bone marrow conditioning regimen
     Dosage: 120 MILLIGRAM
     Route: 065
  3. MELPHALAN [Suspect]
     Active Substance: MELPHALAN
     Indication: Plasma cell myeloma
     Dosage: 120 MILLIGRAM
     Route: 065
     Dates: start: 201703
  4. BENDAMUSTINE [Suspect]
     Active Substance: BENDAMUSTINE
     Indication: Plasma cell myeloma
     Dosage: UNK, QCYCLE
     Route: 042
  5. BORTEZOMIB [Suspect]
     Active Substance: BORTEZOMIB
     Indication: Chemotherapy
     Dosage: QCYCLE; UNSPECIFIED, CTD REGIMEN; DOSAGE FORM: UNSPECIFIED, VD-PACE
     Route: 065
  6. BORTEZOMIB [Suspect]
     Active Substance: BORTEZOMIB
     Indication: Plasma cell myeloma
     Dosage: CYCLIC (VD-PACE) (2 CYCLES) ()
     Route: 065
  7. BORTEZOMIB [Suspect]
     Active Substance: BORTEZOMIB
     Dosage: UNK, CYCLIC (VD-PACE) (LYOPHILIZED POWDER, 2 CYCLES) ()
     Route: 065
  8. CISPLATIN [Suspect]
     Active Substance: CISPLATIN
     Indication: Chemotherapy
     Dosage: QCYCLE;VD-PACE
     Route: 065
  9. CISPLATIN [Suspect]
     Active Substance: CISPLATIN
     Indication: Plasma cell myeloma
     Dosage: VD-PACE
     Route: 065
  10. CYCLOPHOSPHAMIDE [Suspect]
     Active Substance: CYCLOPHOSPHAMIDE
     Indication: Chemotherapy
     Dosage: UNK, QCYCLE
     Route: 065
  11. CYCLOPHOSPHAMIDE [Suspect]
     Active Substance: CYCLOPHOSPHAMIDE
     Indication: Plasma cell myeloma
  12. DEXAMETHASONE [Suspect]
     Active Substance: DEXAMETHASONE
     Indication: Chemotherapy
     Dosage: CYCLE
     Route: 065
  13. DEXAMETHASONE [Suspect]
     Active Substance: DEXAMETHASONE
     Indication: Plasma cell myeloma
     Dosage: CTD REGIMEN
     Route: 065
  14. DEXAMETHASONE [Suspect]
     Active Substance: DEXAMETHASONE
     Dosage: CYCLIC (VD-PACE)
     Route: 065
  15. DEXAMETHASONE [Suspect]
     Active Substance: DEXAMETHASONE
     Dosage: UNK, CYCLIC (VD-PACE)
     Route: 065
  16. DOXORUBICIN [Suspect]
     Active Substance: DOXORUBICIN
     Indication: Chemotherapy
     Dosage: VD-PACE
     Route: 065
  17. DOXORUBICIN [Suspect]
     Active Substance: DOXORUBICIN
     Indication: Plasma cell myeloma
  18. CYCLOPHOSPHAMIDE [Suspect]
     Active Substance: CYCLOPHOSPHAMIDE
     Indication: Plasma cell myeloma
     Dosage: VD-PACE
     Route: 065
  19. CYCLOPHOSPHAMIDE [Suspect]
     Active Substance: CYCLOPHOSPHAMIDE
     Indication: Chemotherapy
     Dosage: CTD REGIMEN
     Route: 065
  20. ETOPOSIDE [Suspect]
     Active Substance: ETOPOSIDE
     Indication: Chemotherapy
     Dosage: UNK, QCYCLE; UNSPECIFIED, CTD REGIMEN
     Route: 065
  21. ETOPOSIDE [Suspect]
     Active Substance: ETOPOSIDE
     Indication: Plasma cell myeloma
     Dosage: VD-PACE
     Route: 065
  22. HUMAN IMMUNOGLOBULIN G [Suspect]
     Active Substance: HUMAN IMMUNOGLOBULIN G
     Indication: Product used for unknown indication
     Dosage: UNK
     Route: 065
  23. LENALIDOMIDE [Suspect]
     Active Substance: LENALIDOMIDE
     Indication: Plasma cell myeloma
     Dosage: UNK, QCYCLE
     Route: 065
  24. MICAFUNGIN [Suspect]
     Active Substance: MICAFUNGIN SODIUM
     Indication: Candida infection
     Dosage: 100 MILLIGRAM, ONCE A DAY
     Route: 065
  25. MICAFUNGIN [Suspect]
     Active Substance: MICAFUNGIN SODIUM
     Dosage: 200 MILLIGRAM, ONCE A DAY
     Route: 065
  26. THALIDOMIDE [Suspect]
     Active Substance: THALIDOMIDE
     Indication: Chemotherapy
     Dosage: CTD REGIMEN
     Route: 065

REACTIONS (27)
  - Plasma cell myeloma [Fatal]
  - Disease progression [Fatal]
  - Malignant neoplasm progression [Fatal]
  - Pneumonia fungal [Fatal]
  - Herpes zoster [Fatal]
  - Gastrointestinal fungal infection [Fatal]
  - Sinus polyp [Fatal]
  - Sinusitis [Fatal]
  - Pancytopenia [Fatal]
  - Enterococcal sepsis [Fatal]
  - Abscess [Fatal]
  - Oral fungal infection [Fatal]
  - Candida infection [Fatal]
  - Varicella zoster virus infection [Fatal]
  - Pneumonia fungal [Fatal]
  - Mucosal inflammation [Fatal]
  - Oral disorder [Fatal]
  - Fungal infection [Fatal]
  - Mucosal erosion [Fatal]
  - Sepsis [Fatal]
  - Plasma cell leukaemia [Fatal]
  - Fungal oesophagitis [Fatal]
  - Pain [Fatal]
  - Acute sinusitis [Fatal]
  - Nasal abscess [Fatal]
  - Bacterial sepsis [Recovering/Resolving]
  - Enterococcal infection [Unknown]

NARRATIVE: CASE EVENT DATE: 20170101
